FAERS Safety Report 16084087 (Version 1)
Quarter: 2019Q1

REPORT INFORMATION
  Report Type: Spontaneous
  Country: US (occurrence: US)
  Receive Date: 20190318
  Receipt Date: 20190318
  Transmission Date: 20190418
  Serious: No
  Sender: FDA-Public Use
  Company Number: US-PFIZER INC-2019107146

PATIENT

DRUGS (1)
  1. ROCURONIUM BROMIDE. [Suspect]
     Active Substance: ROCURONIUM BROMIDE
     Dosage: 70 MG, UNK (40 MG AND SUBSEQUENT ADDITIONAL DOSES, TOTAL OF 70 MG)

REACTIONS (1)
  - Drug ineffective [Unknown]
